FAERS Safety Report 25759820 (Version 2)
Quarter: 2025Q3

REPORT INFORMATION
  Report Type: Spontaneous
  Country: US (occurrence: US)
  Receive Date: 20250904
  Receipt Date: 20250908
  Transmission Date: 20251021
  Serious: No
  Sender: ROCHE
  Company Number: US-ROCHE-10000372451

PATIENT
  Sex: Female

DRUGS (4)
  1. XOLAIR PFS [Suspect]
     Active Substance: OMALIZUMAB
     Indication: Idiopathic urticaria
     Dosage: 150 MG/ML
     Route: 050
     Dates: start: 202009
  2. XOLAIR PFS [Suspect]
     Active Substance: OMALIZUMAB
  3. LIDOCAINE/PRILOCAINE CRM [Concomitant]
  4. HIZENTRA 20% PFS [Concomitant]

REACTIONS (1)
  - Headache [Unknown]
